FAERS Safety Report 15467862 (Version 2)
Quarter: 2018Q4

REPORT INFORMATION
  Report Type: Spontaneous
  Country: US (occurrence: US)
  Receive Date: 20181005
  Receipt Date: 20181130
  Transmission Date: 20190204
  Serious: No
  Sender: FDA-Public Use
  Company Number: US-009507513-1809USA012144

PATIENT
  Sex: Female

DRUGS (1)
  1. INTRON A [Suspect]
     Active Substance: INTERFERON ALFA-2B
     Indication: THROMBOCYTOPENIA
     Dosage: UNK
     Route: 042
     Dates: start: 20160503

REACTIONS (2)
  - Peripheral coldness [Not Recovered/Not Resolved]
  - Product use in unapproved indication [Unknown]
